FAERS Safety Report 5939240-9 (Version None)
Quarter: 2008Q4

REPORT INFORMATION
  Report Type: 
  Country: None (occurrence: None)
  Receive Date: 20081103
  Receipt Date: 20081022
  Transmission Date: 20090506
  Serious: Yes (Death)
  Sender: FDA-Public Use
  Company Number: US-PFIZER INC-2008088954

PATIENT
  Sex: Female
  Weight: 60.454 kg

DRUGS (12)
  1. REVATIO [Suspect]
     Indication: PULMONARY HYPERTENSION
     Dates: start: 20061001, end: 20080822
  2. REMODULIN [Concomitant]
  3. AMILORIDE HYDROCHLORIDE [Concomitant]
  4. CELEXA [Concomitant]
  5. BUMEX [Concomitant]
  6. DIGOXIN [Concomitant]
  7. LAMICTAL [Concomitant]
  8. LEXAPRO [Concomitant]
  9. METOLAZONE [Concomitant]
  10. POTASSIUM CHLORIDE [Concomitant]
  11. PREVACID [Concomitant]
  12. COUMADIN [Concomitant]

REACTIONS (1)
  - DEATH [None]
